FAERS Safety Report 22258871 (Version 2)
Quarter: 2023Q2

REPORT INFORMATION
  Report Type: Spontaneous
  Country: CN (occurrence: CN)
  Receive Date: 20230427
  Receipt Date: 20230508
  Transmission Date: 20230721
  Serious: No
  Sender: FDA-Public Use
  Company Number: CN-009507513-2304CHN007762

PATIENT
  Age: 49 Year
  Sex: Male
  Weight: 27 kg

DRUGS (1)
  1. CILASTATIN SODIUM\IMIPENEM [Suspect]
     Active Substance: CILASTATIN SODIUM\IMIPENEM
     Indication: Pneumonia
     Dosage: 2 GRAM, Q8H
     Route: 041
     Dates: start: 20230411, end: 20230413

REACTIONS (2)
  - Rash pruritic [Recovering/Resolving]
  - Overdose [Unknown]

NARRATIVE: CASE EVENT DATE: 20230411
